FAERS Safety Report 10448244 (Version 1)
Quarter: 2014Q3

REPORT INFORMATION
  Report Type: Spontaneous
  Country: US (occurrence: US)
  Receive Date: 20140911
  Receipt Date: 20140911
  Transmission Date: 20150326
  Serious: Yes (Disabling, Other)
  Sender: FDA-Public Use
  Company Number: US-ASTRAZENECA-2014SE66060

PATIENT
  Age: 52 Year
  Sex: Female
  Weight: 61.2 kg

DRUGS (6)
  1. TOPROL XL [Suspect]
     Active Substance: METOPROLOL SUCCINATE
     Indication: ARRHYTHMIA
     Route: 048
  2. TIKOSYN [Concomitant]
     Active Substance: DOFETILIDE
  3. WARFARIN [Concomitant]
     Active Substance: WARFARIN
     Dosage: 8 MG DAILY ON TUESDAY AND THURSDAY
  4. TOPROL XL [Suspect]
     Active Substance: METOPROLOL SUCCINATE
     Indication: ARRHYTHMIA
     Route: 048
  5. WARFARIN [Concomitant]
     Active Substance: WARFARIN
     Dosage: 10 MG DAILY ON MONDAY, WEDNESDAY, FRIDAY AND SATURDAY
  6. ADVIL [Concomitant]
     Active Substance: IBUPROFEN
     Dosage: AS NEEDED

REACTIONS (3)
  - Cardiac failure congestive [Unknown]
  - Hypotension [Unknown]
  - Off label use [Unknown]
